FAERS Safety Report 9720500 (Version 1)
Quarter: 2013Q4

REPORT INFORMATION
  Report Type: Spontaneous
  Country: DE (occurrence: DE)
  Receive Date: 20131129
  Receipt Date: 20131129
  Transmission Date: 20140711
  Serious: Yes (Hospitalization, Other)
  Sender: FDA-Public Use
  Company Number: DE-JNJFOC-20131115549

PATIENT
  Age: 64 Year
  Sex: Female
  Weight: 119 kg

DRUGS (15)
  1. XARELTO [Suspect]
     Indication: CEREBROVASCULAR ACCIDENT PROPHYLAXIS
     Route: 048
     Dates: end: 20130806
  2. XARELTO [Suspect]
     Indication: ATRIAL FIBRILLATION
     Route: 048
     Dates: end: 20130806
  3. INSULIN HUMAN [Concomitant]
     Route: 065
  4. COAPROVEL [Concomitant]
     Route: 065
  5. SIMVAHEXAL [Concomitant]
     Route: 065
  6. METOHEXAL [Concomitant]
     Route: 065
  7. METOPROLOL [Concomitant]
     Route: 065
  8. DIGITOXIN [Concomitant]
     Route: 065
  9. ACETYLSALICYLIC ACID [Concomitant]
     Route: 065
  10. AMLODIPINE [Concomitant]
     Route: 065
  11. VALSARTAN [Concomitant]
     Route: 065
  12. CLEXANE [Concomitant]
     Route: 058
  13. ACTRAPID [Concomitant]
     Route: 065
  14. INSUMAN BASAL [Concomitant]
     Route: 065
  15. APIDRA [Concomitant]
     Route: 065

REACTIONS (2)
  - Cerebral infarction [Not Recovered/Not Resolved]
  - Drug ineffective [Unknown]
